FAERS Safety Report 8625575-8 (Version None)
Quarter: 2012Q3

REPORT INFORMATION
  Report Type: 
  Country: None (occurrence: None)
  Receive Date: 20120827
  Receipt Date: 20120816
  Transmission Date: 20120928
  Serious: Yes (Other)
  Sender: FDA-Public Use
  Company Number: CO-ROCHE-1104454

PATIENT
  Sex: Female

DRUGS (1)
  1. XOLAIR [Suspect]
     Indication: ASTHMA
     Route: 058
     Dates: start: 20101217, end: 20120601

REACTIONS (9)
  - PRURITUS [None]
  - JOINT INJURY [None]
  - INSOMNIA [None]
  - ROAD TRAFFIC ACCIDENT [None]
  - HEADACHE [None]
  - FEELING ABNORMAL [None]
  - HYPERSENSITIVITY [None]
  - EAR DISORDER [None]
  - DYSPNOEA [None]
